FAERS Safety Report 12282425 (Version 1)
Quarter: 2016Q2

REPORT INFORMATION
  Report Type: Spontaneous
  Country: US (occurrence: US)
  Receive Date: 20160419
  Receipt Date: 20160419
  Transmission Date: 20160815
  Serious: Yes (Other)
  Sender: FDA-Public Use
  Company Number: US-CELGENEUS-USA-2016043150

PATIENT
  Age: 61 Year
  Sex: Male

DRUGS (2)
  1. THALOMID [Suspect]
     Active Substance: THALIDOMIDE
     Indication: OFF LABEL USE
  2. THALOMID [Suspect]
     Active Substance: THALIDOMIDE
     Indication: HEPATIC CANCER
     Dosage: 400 MILLIGRAM
     Route: 048
     Dates: start: 20160302, end: 201604

REACTIONS (2)
  - Decreased appetite [Not Recovered/Not Resolved]
  - Fatigue [Not Recovered/Not Resolved]

NARRATIVE: CASE EVENT DATE: 201603
